FAERS Safety Report 17256030 (Version 1)
Quarter: 2020Q1

REPORT INFORMATION
  Report Type: Spontaneous
  Country: GB (occurrence: GB)
  Receive Date: 20200110
  Receipt Date: 20200110
  Transmission Date: 20200409
  Serious: Yes (Other)
  Sender: FDA-Public Use
  Company Number: GB-TEVA-2020-GB-1165375

PATIENT
  Age: 40 Year
  Sex: Female

DRUGS (4)
  1. LANSOPRAZOLE, CAPSULES 15 MG [Suspect]
     Active Substance: LANSOPRAZOLE
     Indication: GASTROOESOPHAGEAL REFLUX PROPHYLAXIS
     Dosage: 15 MILLIGRAM DAILY;
     Dates: start: 201909
  2. SERTRALINE [Concomitant]
     Active Substance: SERTRALINE HYDROCHLORIDE
  3. CLOMIPRAMINE [Concomitant]
     Active Substance: CLOMIPRAMINE
  4. FLUPENTIXOL [Concomitant]
     Active Substance: FLUPENTIXOL

REACTIONS (5)
  - Anxiety [Unknown]
  - Nervousness [Unknown]
  - Tremor [Unknown]
  - Mental impairment [Unknown]
  - Palpitations [Unknown]

NARRATIVE: CASE EVENT DATE: 201909
